FAERS Safety Report 12284984 (Version 1)
Quarter: 2016Q2

REPORT INFORMATION
  Report Type: Spontaneous
  Country: US (occurrence: US)
  Receive Date: 20160420
  Receipt Date: 20160420
  Transmission Date: 20160815
  Serious: No
  Sender: FDA-Public Use
  Company Number: US-ASTRAZENECA-2016SE38134

PATIENT
  Age: 54 Year
  Sex: Female

DRUGS (2)
  1. ROSUVASTATIN. [Suspect]
     Active Substance: ROSUVASTATIN
     Indication: TYPE IIB HYPERLIPIDAEMIA
     Route: 048
  2. NICOTINIC ACID [Concomitant]
     Active Substance: NIACIN

REACTIONS (1)
  - Drug intolerance [Unknown]
